FAERS Safety Report 14420307 (Version 1)
Quarter: 2018Q1

REPORT INFORMATION
  Report Type: Spontaneous
  Country: US (occurrence: US)
  Receive Date: 20180122
  Receipt Date: 20180122
  Transmission Date: 20180509
  Serious: No
  Sender: FDA-Public Use
  Company Number: US-ROCHE-1925884

PATIENT
  Sex: Female
  Weight: 53.57 kg

DRUGS (2)
  1. TECFIDERA [Suspect]
     Active Substance: DIMETHYL FUMARATE
     Indication: PRODUCT USED FOR UNKNOWN INDICATION
     Dosage: NO
     Route: 048
  2. RITUXAN [Suspect]
     Active Substance: RITUXIMAB
     Indication: MULTIPLE SCLEROSIS
     Dosage: INFUSION FOR 8 HOURS EVERY SIX MONTHS ;ONGOING: NO
     Route: 042
     Dates: start: 20151104, end: 20160908

REACTIONS (2)
  - Ocular neoplasm [Recovered/Resolved]
  - Off label use [Unknown]
